FAERS Safety Report 7655715-9 (Version None)
Quarter: 2011Q3

REPORT INFORMATION
  Report Type: 
  Country: None (occurrence: None)
  Receive Date: 20110801
  Receipt Date: 20110718
  Transmission Date: 20111222
  Serious: Yes (Other)
  Sender: FDA-Public Use
  Company Number: AUR-APL-2011-03956

PATIENT
  Age: 75 Year
  Sex: Male

DRUGS (5)
  1. CIMETIDINE [Suspect]
     Indication: GASTRODUODENAL ULCER
  2. TICLOPIDINE HYDROCHLORIDE [Suspect]
     Indication: DEMENTIA ALZHEIMER'S TYPE
     Dosage: 500 MG (250 MG, 2 IN 1 D)
  3. DONEPEZIL HCL [Suspect]
     Indication: DEMENTIA ALZHEIMER'S TYPE
     Dosage: (10 MG, 1 D)
  4. CITALOPRAM HYDROBROMIDE [Suspect]
     Indication: DEMENTIA ALZHEIMER'S TYPE
     Dosage: (20 MG, 1 D)
  5. QUETIAPINE FUMARATE [Suspect]
     Indication: DEMENTIA ALZHEIMER'S TYPE
     Dosage: 200 MG (100 MG, 2 IN 1 D)

REACTIONS (15)
  - HYPERTENSION [None]
  - BLOOD GLUCOSE INCREASED [None]
  - ELECTROENCEPHALOGRAM ABNORMAL [None]
  - CEREBRAL ATROPHY [None]
  - SEROTONIN SYNDROME [None]
  - GASTRODUODENAL ULCER [None]
  - TREMOR [None]
  - CATECHOLAMINES URINE INCREASED [None]
  - EROSIVE DUODENITIS [None]
  - GASTRODUODENAL HAEMORRHAGE [None]
  - HYPERREFLEXIA [None]
  - GASTRITIS EROSIVE [None]
  - HYPERHIDROSIS [None]
  - RESTLESSNESS [None]
  - MYOCLONUS [None]
